FAERS Safety Report 25439611 (Version 1)
Quarter: 2025Q2

REPORT INFORMATION
  Report Type: Spontaneous
  Country: US (occurrence: None)
  Receive Date: 20250613
  Receipt Date: 20250613
  Transmission Date: 20250716
  Serious: Yes (Hospitalization)
  Sender: FDA-CTU
  Company Number: None

PATIENT
  Age: 65 Year
  Sex: Female

DRUGS (1)
  1. LENALIDOMIDE [Suspect]
     Active Substance: LENALIDOMIDE
     Indication: Plasma cell myeloma
     Dosage: 5MG QD ORAL
     Route: 048
     Dates: start: 20200526, end: 20250602

REACTIONS (3)
  - Brain injury [None]
  - Cerebrovascular accident [None]
  - Hypercoagulation [None]

NARRATIVE: CASE EVENT DATE: 20250602
